FAERS Safety Report 7915172-1 (Version None)
Quarter: 2011Q4

REPORT INFORMATION
  Report Type: 
  Country: None (occurrence: None)
  Receive Date: 20111115
  Receipt Date: 20111109
  Transmission Date: 20120403
  Serious: Yes (Life-Threatening, Hospitalization, Disabling, Other)
  Sender: FDA-Public Use
  Company Number: CO-JNJFOC-20111104280

PATIENT
  Sex: Male
  Weight: 78 kg

DRUGS (1)
  1. XARELTO [Suspect]
     Indication: KNEE ARTHROPLASTY
     Route: 048
     Dates: start: 20111018, end: 20111104

REACTIONS (1)
  - PULMONARY EMBOLISM [None]
